FAERS Safety Report 9995394 (Version 2)
Quarter: 2014Q2

REPORT INFORMATION
  Report Type: Report from Study
  Country: US (occurrence: US)
  Receive Date: 20140311
  Receipt Date: 20140516
  Transmission Date: 20141212
  Serious: Yes (Disabling, Other)
  Sender: FDA-Public Use
  Company Number: US-ASTRAZENECA-2014SE16637

PATIENT
  Age: 20725 Day
  Sex: Male

DRUGS (20)
  1. AZD6140 [Suspect]
     Indication: CORONARY ARTERY DISEASE
     Route: 048
     Dates: start: 20110207, end: 20111013
  2. AZD6140 [Suspect]
     Indication: CORONARY ARTERY DISEASE
     Route: 048
     Dates: start: 20111020, end: 20111215
  3. AZD6140 [Suspect]
     Indication: CORONARY ARTERY DISEASE
     Route: 048
     Dates: start: 20111221, end: 20120104
  4. AZD6140 [Suspect]
     Indication: CORONARY ARTERY DISEASE
     Route: 048
     Dates: start: 20120111, end: 20120204
  5. AZD6140 [Suspect]
     Indication: CORONARY ARTERY DISEASE
     Route: 048
     Dates: start: 20120210, end: 20120622
  6. AZD6140 [Suspect]
     Indication: CORONARY ARTERY DISEASE
     Route: 048
     Dates: start: 20120630, end: 20130608
  7. AZD6140 [Suspect]
     Indication: CORONARY ARTERY DISEASE
     Route: 048
     Dates: start: 20130612, end: 20130714
  8. AZD6140 [Suspect]
     Indication: CORONARY ARTERY DISEASE
     Route: 048
     Dates: start: 20131115, end: 20140310
  9. AZD6140 [Suspect]
     Indication: CORONARY ARTERY DISEASE
     Route: 048
     Dates: start: 20140318
  10. CRESTOR [Concomitant]
     Indication: HYPERLIPIDAEMIA
     Route: 048
  11. FENOFIBRATE MICRONIZED [Concomitant]
     Indication: HYPERCHOLESTEROLAEMIA
     Route: 048
     Dates: start: 20131116
  12. FISH OIL [Concomitant]
     Indication: HYPERCHOLESTEROLAEMIA
     Route: 048
     Dates: start: 20131115
  13. CO Q-10 [Concomitant]
     Indication: NUTRITIONAL SUPPLEMENTATION
     Route: 048
     Dates: start: 20131115
  14. VIAGRA [Concomitant]
     Indication: ERECTILE DYSFUNCTION
     Route: 048
     Dates: start: 20131115
  15. ASA [Concomitant]
     Route: 048
     Dates: end: 20120622
  16. ASA [Concomitant]
     Route: 048
     Dates: start: 20120629, end: 20130608
  17. ASA [Concomitant]
     Route: 048
     Dates: start: 20130609, end: 20130609
  18. ASA [Concomitant]
     Route: 048
     Dates: start: 20130610, end: 20130714
  19. ASA [Concomitant]
     Route: 048
     Dates: start: 20131115, end: 20140310
  20. ASA [Concomitant]
     Route: 048
     Dates: start: 20140318

REACTIONS (1)
  - Otitis media acute [Recovered/Resolved]
